FAERS Safety Report 24289231 (Version 5)
Quarter: 2025Q1

REPORT INFORMATION
  Report Type: Report from Study
  Country: US (occurrence: US)
  Receive Date: 20240906
  Receipt Date: 20250205
  Transmission Date: 20250409
  Serious: No
  Sender: DECIPHERA PHARMACEUTICALS
  Company Number: US-DECIPHERA PHARMACEUTICALS LLC-2024US000754

PATIENT
  Age: 79 Year
  Sex: Female
  Weight: 94.059 kg

DRUGS (4)
  1. QINLOCK [Suspect]
     Active Substance: RIPRETINIB
     Indication: Gastrointestinal stromal tumour
     Dosage: 150 MILLIGRAM, QD
     Route: 048
     Dates: start: 20240819, end: 2024
  2. QINLOCK [Suspect]
     Active Substance: RIPRETINIB
     Route: 048
     Dates: start: 20240902, end: 2024
  3. QINLOCK [Suspect]
     Active Substance: RIPRETINIB
     Dosage: 150 MILLIGRAM, QD
     Route: 048
     Dates: start: 2024, end: 2024
  4. QINLOCK [Suspect]
     Active Substance: RIPRETINIB
     Dosage: 150 MILLIGRAM, QD
     Route: 048
     Dates: start: 2024, end: 2024

REACTIONS (6)
  - Depressed mood [Unknown]
  - Abdominal pain upper [Recovering/Resolving]
  - Myalgia [Unknown]
  - Fatigue [Unknown]
  - Constipation [Recovering/Resolving]
  - Drug ineffective [Unknown]

NARRATIVE: CASE EVENT DATE: 20240101
